FAERS Safety Report 13178563 (Version 1)
Quarter: 2017Q1

REPORT INFORMATION
  Report Type: Other
  Country: CA (occurrence: CA)
  Receive Date: 20170202
  Receipt Date: 20170202
  Transmission Date: 20170428
  Serious: Yes (Other)
  Sender: FDA-Public Use
  Company Number: CA-APOTEX-2016AP013671

PATIENT
  Age: 26 Year
  Sex: Female
  Weight: 56.69 kg

DRUGS (1)
  1. APO-LAMOTRIGINE [Suspect]
     Active Substance: LAMOTRIGINE
     Indication: SEIZURE
     Dosage: 125 MG, BID
     Route: 065

REACTIONS (2)
  - Product substitution issue [Recovered/Resolved]
  - Seizure [Recovered/Resolved]
